FAERS Safety Report 5448520-5 (Version None)
Quarter: 2007Q3

REPORT INFORMATION
  Report Type: 
  Country: None (occurrence: None)
  Receive Date: 20070905
  Receipt Date: 20070821
  Transmission Date: 20080115
  Serious: Yes (Death, Hospitalization)
  Sender: FDA-Public Use
  Company Number: ENC200700144

PATIENT
  Age: 21 Day
  Sex: Female
  Weight: 2.7 kg

DRUGS (2)
  1. ARGATROBAN [Suspect]
     Indication: HEPARIN-INDUCED THROMBOCYTOPENIA
     Dosage: 1 MG/KG/MIN, INTRAVENOUS
     Route: 042
  2. HEPARIN [Suspect]
     Indication: ANTICOAGULANT THERAPY

REACTIONS (8)
  - AORTIC VALVE INCOMPETENCE [None]
  - ECHOCARDIOGRAM ABNORMAL [None]
  - EJECTION FRACTION DECREASED [None]
  - HEPARIN-INDUCED THROMBOCYTOPENIA [None]
  - MITRAL VALVE INCOMPETENCE [None]
  - PULMONARY HYPERTENSION [None]
  - THROMBOSIS [None]
  - TRICUSPID VALVE INCOMPETENCE [None]
